FAERS Safety Report 7402584-8 (Version None)
Quarter: 2011Q1

REPORT INFORMATION
  Report Type: 
  Country: None (occurrence: None)
  Receive Date: 20110331
  Receipt Date: 20110315
  Transmission Date: 20110831
  Serious: Yes (Hospitalization)
  Sender: FDA-Public Use
  Company Number: 017439

PATIENT
  Sex: Female
  Weight: 66 kg

DRUGS (10)
  1. FAMOTIDINE [Concomitant]
  2. CERTOLIZUMAB PEGOL (CERTOLIZUMAB PEGOL) [Suspect]
     Indication: RHEUMATOID ARTHRITIS
     Dosage: (400 MG 1X/4 WEEKS  SUBCUTANEOUS), ( SUBCUTANEOUS)
     Route: 058
     Dates: start: 20101027, end: 20110216
  3. CERTOLIZUMAB PEGOL (CERTOLIZUMAB PEGOL) [Suspect]
     Indication: RHEUMATOID ARTHRITIS
     Dosage: (400 MG 1X/4 WEEKS  SUBCUTANEOUS), ( SUBCUTANEOUS)
     Route: 058
     Dates: start: 20091218, end: 20100804
  4. FOLIC ACID [Concomitant]
  5. ZOLPIDEM TARTRATE [Concomitant]
  6. TEPRENONE [Concomitant]
  7. VALPROATE SODIUM [Concomitant]
  8. PREDNISOLONE [Concomitant]
  9. OLMESARTAN MEDOXOMIL [Concomitant]
  10. METHOTREXATE [Concomitant]

REACTIONS (8)
  - CEREBRAL INFARCTION [None]
  - DYSARTHRIA [None]
  - URINARY INCONTINENCE [None]
  - CONVULSION [None]
  - HEMIPLEGIA [None]
  - VOMITING [None]
  - FAECAL INCONTINENCE [None]
  - GAZE PALSY [None]
